FAERS Safety Report 20206797 (Version 2)
Quarter: 2022Q1

REPORT INFORMATION
  Report Type: Spontaneous
  Country: US (occurrence: US)
  Receive Date: 20211220
  Receipt Date: 20220119
  Transmission Date: 20220423
  Serious: Yes (Other)
  Sender: FDA-Public Use
  Company Number: US-Blueprint Medicines Corporation-SP-US-2021-002502

PATIENT
  Age: 70 Year
  Sex: Female

DRUGS (1)
  1. AYVAKIT [Suspect]
     Active Substance: AVAPRITINIB
     Indication: Systemic mastocytosis
     Route: 048
     Dates: start: 20180401

REACTIONS (4)
  - Anaphylactic reaction [Unknown]
  - Leukaemia [Unknown]
  - Drug ineffective [Unknown]
  - Tryptase increased [Unknown]

NARRATIVE: CASE EVENT DATE: 20211129
